FAERS Safety Report 9189274 (Version 2)
Quarter: 2013Q2

REPORT INFORMATION
  Report Type: Spontaneous
  Country: FR (occurrence: None)
  Receive Date: 20120702
  Receipt Date: 20130225
  Transmission Date: 20140414
  Serious: Yes (Other)
  Sender: FDA-Public Use
  Company Number: 2011-519

PATIENT
  Sex: Male

DRUGS (5)
  1. PRIALT (ZICONOTIDE) INTRATHECAL INFUSION [Suspect]
     Indication: PERINEAL PAIN
     Route: 037
  2. ATARAX (HYDROXYZINE) [Concomitant]
  3. STABLON (TIANEPTINE SODIUM) [Concomitant]
  4. MORPHINE (MORPHINE) INJECTION [Suspect]
  5. CLONIDINE (CLONIDINE) INJECTION [Suspect]
     Route: 037

REACTIONS (3)
  - Paraesthesia [None]
  - Paranoia [None]
  - Hallucination [None]
